FAERS Safety Report 8809444 (Version 1)
Quarter: 2012Q4

REPORT INFORMATION
  Report Type: 
  Country: JP (occurrence: JP)
  Receive Date: 20120926
  Receipt Date: 20120926
  Transmission Date: 20130627
  Serious: Yes (Life-Threatening, Other)
  Sender: FDA-Public Use
  Company Number: JP-ROCHE-1128899

PATIENT
  Age: 61 None
  Sex: Male
  Weight: 68 kg

DRUGS (15)
  1. AVASTIN [Suspect]
     Indication: LUNG ADENOCARCINOMA METASTATIC
     Route: 041
     Dates: start: 20111208, end: 20111208
  2. AVASTIN [Suspect]
     Indication: LUNG ADENOCARCINOMA METASTATIC
     Route: 041
     Dates: start: 20120112, end: 20120112
  3. DOCETAXEL [Suspect]
     Indication: LUNG ADENOCARCINOMA METASTATIC
     Route: 041
     Dates: start: 20111208, end: 20120112
  4. CISPLATIN [Suspect]
     Indication: LUNG ADENOCARCINOMA METASTATIC
     Route: 041
     Dates: start: 20111208, end: 20120112
  5. ALOXI [Concomitant]
     Route: 041
     Dates: start: 20111208, end: 20120109
  6. DEXART [Concomitant]
     Route: 041
     Dates: start: 20111208, end: 20120109
  7. DIOVAN [Concomitant]
     Indication: HYPERTENSION
     Route: 048
     Dates: start: 20111215
  8. AMLODIN [Concomitant]
     Indication: HYPERTENSION
     Route: 048
     Dates: start: 20111215
  9. URSO [Concomitant]
     Indication: HEPATITIS C
     Route: 048
  10. MS CONTIN [Concomitant]
     Indication: CANCER PAIN
     Route: 048
     Dates: start: 20120107
  11. MYSLEE [Concomitant]
     Indication: INSOMNIA
     Route: 048
     Dates: start: 20111213
  12. PRIMPERAN (BELGIUM) [Concomitant]
     Indication: PROPHYLAXIS OF NAUSEA AND VOMITING
     Dosage: One-twice/day (for ton)
     Route: 048
     Dates: start: 20111216
  13. EMEND [Concomitant]
     Route: 065
     Dates: start: 20120112, end: 20120112
  14. EMEND [Concomitant]
     Route: 065
     Dates: start: 20120113, end: 20120114
  15. MAGMITT [Concomitant]
     Route: 048
     Dates: start: 20111203

REACTIONS (15)
  - Intestinal obstruction [Recovering/Resolving]
  - Shock [Unknown]
  - Renal failure acute [Unknown]
  - Febrile neutropenia [Unknown]
  - Gastric ulcer [Unknown]
  - Gastritis [Unknown]
  - Malaise [Unknown]
  - Stomatitis [Unknown]
  - Neutrophil count decreased [Unknown]
  - White blood cell count decreased [Unknown]
  - Platelet count decreased [Unknown]
  - Aspartate aminotransferase increased [Recovered/Resolved]
  - Insomnia [Unknown]
  - Hypertension [Unknown]
  - Alanine aminotransferase increased [Recovered/Resolved]
